FAERS Safety Report 23239019 (Version 1)
Quarter: 2023Q4

REPORT INFORMATION
  Report Type: Spontaneous
  Country: US (occurrence: US)
  Receive Date: 20231129
  Receipt Date: 20231129
  Transmission Date: 20240110
  Serious: No
  Sender: FDA-Public Use
  Company Number: US-PADAGIS-2023PAD01653

PATIENT

DRUGS (1)
  1. GYNAZOLE-1 [Suspect]
     Active Substance: BUTOCONAZOLE NITRATE
     Indication: Fungal infection
     Dosage: 1 DOSAGE FORM SINGLE DOSE FOR YEARS
     Route: 067
     Dates: start: 2023

REACTIONS (1)
  - Drug ineffective [Unknown]

NARRATIVE: CASE EVENT DATE: 20230101
